FAERS Safety Report 17496640 (Version 1)
Quarter: 2020Q1

REPORT INFORMATION
  Report Type: Spontaneous
  Country: UA (occurrence: UA)
  Receive Date: 20200304
  Receipt Date: 20200304
  Transmission Date: 20200409
  Serious: Yes (Hospitalization)
  Sender: FDA-Public Use
  Company Number: UA-TEVA-2020-UA-1193145

PATIENT
  Age: 47 Year
  Sex: Male

DRUGS (8)
  1. EQUORAL [Suspect]
     Active Substance: CYCLOSPORINE
     Indication: RENAL TRANSPLANT
     Dosage: 400 MILLIGRAM DAILY; PRESCRIBED ON 28-MAR-2013
     Route: 048
  2. MYFENAX [Suspect]
     Active Substance: MYCOPHENOLATE MOFETIL
     Indication: RENAL TRANSPLANT
     Dosage: PRESCRIBED ON 28-MAR-2013
     Route: 048
  3. FLUCONAZOLUM [Concomitant]
     Dosage: 200 MILLIGRAM DAILY;
     Route: 042
     Dates: start: 20190325, end: 20190329
  4. VALCYTE [Concomitant]
     Active Substance: VALGANCICLOVIR HYDROCHLORIDE
     Dosage: 450 MILLIGRAM DAILY;
     Route: 048
     Dates: start: 20130304, end: 20130320
  5. CYMEVENE [Concomitant]
     Active Substance: GANCICLOVIR
     Dosage: 500 MILLIGRAM DAILY;
     Route: 042
     Dates: start: 20130316, end: 20130321
  6. PANTOPRAZOLUM [Concomitant]
     Active Substance: PANTOPRAZOLE
     Dosage: 40 MILLIGRAM DAILY;
     Route: 048
     Dates: start: 20130313, end: 20130329
  7. BISEPTOL [Concomitant]
     Active Substance: SULFAMETHOXAZOLE\TRIMETHOPRIM
     Dosage: 480 MILLIGRAM DAILY;
     Route: 048
     Dates: start: 20130320
  8. AEVIT [Concomitant]
     Active Substance: .ALPHA.-TOCOPHEROL\RETINOL
     Dosage: 4 DOSAGE FORMS DAILY;
     Route: 048
     Dates: start: 20130325, end: 20130401

REACTIONS (6)
  - Nausea [Recovered/Resolved]
  - Gingival swelling [Recovered/Resolved]
  - Vomiting [Recovered/Resolved]
  - Product substitution issue [Unknown]
  - Diarrhoea [Recovered/Resolved]
  - Complications of transplant surgery [Recovered/Resolved]

NARRATIVE: CASE EVENT DATE: 20130328
